FAERS Safety Report 8373533-3 (Version None)
Quarter: 2012Q2

REPORT INFORMATION
  Report Type: 
  Country: None (occurrence: None)
  Receive Date: 20120521
  Receipt Date: 20110912
  Transmission Date: 20120825
  Serious: No
  Sender: FDA-Public Use
  Company Number: US-TEVA-2011004003

PATIENT
  Sex: Female
  Weight: 84.444 kg

DRUGS (2)
  1. TREANDA [Suspect]
     Indication: WALDENSTROM'S MACROGLOBULINAEMIA
     Route: 042
     Dates: start: 20110111, end: 20110511
  2. RITUXAN [Concomitant]
     Indication: WALDENSTROM'S MACROGLOBULINAEMIA
     Route: 042
     Dates: start: 20110111, end: 20110511

REACTIONS (1)
  - HYPERTHYROIDISM [None]
